FAERS Safety Report 9029508 (Version 1)
Quarter: 2013Q1

REPORT INFORMATION
  Report Type: Spontaneous
  Country: US (occurrence: US)
  Receive Date: 20130125
  Receipt Date: 20130125
  Transmission Date: 20140127
  Serious: No
  Sender: FDA-Public Use
  Company Number: US-009507513-1210USA012064

PATIENT
  Sex: Male

DRUGS (6)
  1. VICTRELIS [Suspect]
     Indication: HEPATITIS C
     Dosage: 800 MG, Q8H
     Route: 048
     Dates: start: 20120926
  2. PEGASYS [Suspect]
  3. RIBAPAK [Suspect]
  4. ATENOLOL [Concomitant]
  5. CITALOPRAM [Concomitant]
  6. ALKA-SELTZER [Concomitant]

REACTIONS (6)
  - Dyskinesia [Unknown]
  - Restlessness [Unknown]
  - Memory impairment [Unknown]
  - Depression [Unknown]
  - Headache [Unknown]
  - Pain [Unknown]
